FAERS Safety Report 14354554 (Version 2)
Quarter: 2018Q1

REPORT INFORMATION
  Report Type: Spontaneous
  Country: PL (occurrence: PL)
  Receive Date: 20180105
  Receipt Date: 20180202
  Transmission Date: 20180509
  Serious: Yes (Hospitalization, Other)
  Sender: FDA-Public Use
  Company Number: PL-ASTELLAS-2018US000087

PATIENT
  Age: 60 Year
  Sex: Female

DRUGS (1)
  1. TACROLIMUS. [Suspect]
     Active Substance: TACROLIMUS
     Indication: LIVER TRANSPLANT
     Dosage: UNK UNK, UNKNOWN FREQ.
     Route: 065

REACTIONS (9)
  - Mental disorder [Unknown]
  - Escherichia sepsis [Unknown]
  - Respiratory tract infection [Unknown]
  - Clostridium difficile infection [Unknown]
  - Diabetes mellitus [Unknown]
  - Thrombocytopenia [Recovered/Resolved]
  - Influenza [Unknown]
  - Immunosuppressant drug level increased [Unknown]
  - Gastrointestinal haemorrhage [Unknown]
